FAERS Safety Report 5800572-6 (Version None)
Quarter: 2008Q3

REPORT INFORMATION
  Report Type: 
  Country: None (occurrence: None)
  Receive Date: 20080701
  Receipt Date: 20080620
  Transmission Date: 20090109
  Serious: Yes (Hospitalization)
  Sender: FDA-Public Use
  Company Number: 6043781

PATIENT
  Age: 62 Year
  Sex: Female

DRUGS (5)
  1. BISOPROLOL FUMARATE [Suspect]
     Indication: HYPERTENSION
     Dosage: 3.75 MG (3.75 MG, 1 D); ORAL
     Route: 048
     Dates: start: 20040101
  2. GLEEVEC [Suspect]
     Indication: CHRONIC MYELOID LEUKAEMIA
     Dosage: 500 MG (500 MG, 1 D); ORAL
     Route: 048
     Dates: start: 20040901, end: 20080411
  3. ATACAND [Suspect]
     Indication: CARDIAC FAILURE
     Dosage: 8 MG (8 MG, 1 D); ORAL
     Route: 048
     Dates: start: 20040101
  4. KARDEGIC (POWDER FOR ORAL SOLUTION (ACETYLSALICYLIC ACID, ACETYLSALICY [Suspect]
     Indication: THROMBOSIS PROPHYLAXIS
     Dosage: 75 MG (75 MG, 1 D); ORAL
     Route: 048
     Dates: start: 20040101
  5. VIRLIX (TABLET) (CETIRIZINE HYDROCHLORIDE) [Suspect]
     Indication: HYPERSENSITIVITY
     Dosage: 10 MG (10 MG, 1 D); ORAL
     Route: 048
     Dates: start: 20040101

REACTIONS (1)
  - PERICARDITIS [None]
